FAERS Safety Report 4546717-X (Version None)
Quarter: 2005Q1

REPORT INFORMATION
  Report Type: 
  Country: None (occurrence: None)
  Receive Date: 20050105
  Receipt Date: 20041216
  Transmission Date: 20050727
  Serious: Yes (Disabling)
  Sender: FDA-Public Use
  Company Number: GBS041216206

PATIENT
  Sex: Female

DRUGS (10)
  1. FLUOXETINE-ORAL (FLUOXETINE HYDRCHLOR [Suspect]
     Dates: start: 20000126
  2. VENLAFAXINE HCL [Concomitant]
  3. AMITRIPTYLINE [Concomitant]
  4. CITALOPRAM [Concomitant]
  5. PAROXETINE HCL [Concomitant]
  6. DOTHIEPIN HYDROCHLORIDE [Concomitant]
  7. LOFEPRAMINE [Concomitant]
  8. MIRTAZAPINE [Concomitant]
  9. LOSARTAN [Concomitant]
  10. OMEPRAZOLE [Concomitant]

REACTIONS (3)
  - EYE INFLAMMATION [None]
  - EYE PRURITUS [None]
  - EYELID OEDEMA [None]
